FAERS Safety Report 16963152 (Version 2)
Quarter: 2019Q4

REPORT INFORMATION
  Report Type: Spontaneous
  Country: GB (occurrence: GB)
  Receive Date: 20191025
  Receipt Date: 20191120
  Transmission Date: 20200122
  Serious: Yes (Disabling, Other)
  Sender: FDA-Public Use
  Company Number: GB-ASTRAZENECA-2019SF50145

PATIENT
  Age: 77 Year
  Sex: Male

DRUGS (1)
  1. DURVALUMAB. [Suspect]
     Active Substance: DURVALUMAB
     Indication: NON-SMALL CELL LUNG CANCER STAGE III
     Dosage: 10.0MG UNKNOWN
     Route: 042
     Dates: start: 20190529, end: 20191011

REACTIONS (9)
  - Visual impairment [Recovering/Resolving]
  - Optic ischaemic neuropathy [Not Recovered/Not Resolved]
  - Headache [Recovered/Resolved]
  - Retinal vein occlusion [Not Recovered/Not Resolved]
  - Temporal arteritis [Unknown]
  - Paraesthesia [Unknown]
  - Dizziness [Unknown]
  - Optic neuropathy [Not Recovered/Not Resolved]
  - Transient ischaemic attack [Unknown]

NARRATIVE: CASE EVENT DATE: 201907
